FAERS Safety Report 8314634-5 (Version None)
Quarter: 2012Q2

REPORT INFORMATION
  Report Type: 
  Country: None (occurrence: None)
  Receive Date: 20120426
  Receipt Date: 20120418
  Transmission Date: 20120825
  Serious: Yes (Hospitalization, Other)
  Sender: FDA-Public Use
  Company Number: US-BAYER-201016074NA

PATIENT
  Age: 48 Year
  Sex: Female
  Weight: 79.365 kg

DRUGS (6)
  1. VITAMIN TAB [Concomitant]
  2. YASMIN [Suspect]
     Route: 048
  3. YAZ [Suspect]
     Dosage: 1 DF, QD
     Route: 048
     Dates: start: 20060731, end: 20060801
  4. ANTI-ITCH CREAM [Concomitant]
  5. CALCIUM [Concomitant]
  6. TUCKS [Concomitant]

REACTIONS (5)
  - LIMB DISCOMFORT [None]
  - PULMONARY THROMBOSIS [None]
  - DYSPNOEA [None]
  - PULMONARY EMBOLISM [None]
  - DEEP VEIN THROMBOSIS [None]
